FAERS Safety Report 14749930 (Version 5)
Quarter: 2019Q2

REPORT INFORMATION
  Report Type: Spontaneous
  Country: US (occurrence: US)
  Receive Date: 20180412
  Receipt Date: 20190422
  Transmission Date: 20190711
  Serious: No
  Sender: FDA-Public Use
  Company Number: US-TEVA-2018-US-879503

PATIENT
  Age: 90 Year
  Sex: Female

DRUGS (14)
  1. XARELTO [Concomitant]
     Active Substance: RIVAROXABAN
  2. LASIX [Concomitant]
     Active Substance: FUROSEMIDE
     Route: 065
  3. SYNRIBO [Suspect]
     Active Substance: OMACETAXINE MEPESUCCINATE
     Dosage: 2MG/0.57ML
     Route: 065
     Dates: start: 20190402
  4. FERROUS SULFATE. [Concomitant]
     Active Substance: FERROUS SULFATE
     Route: 065
  5. HYDROXYUREA. [Concomitant]
     Active Substance: HYDROXYUREA
     Route: 065
  6. LATANOPROST. [Concomitant]
     Active Substance: LATANOPROST
  7. METHOCARBAM [Concomitant]
     Active Substance: METHOCARBAMOL
     Route: 065
  8. SYNRIBO [Suspect]
     Active Substance: OMACETAXINE MEPESUCCINATE
     Indication: CHRONIC MYELOID LEUKAEMIA
     Dosage: 4 MILLIGRAM DAILY; 2MG/0.57ML
     Route: 065
     Dates: start: 20171208, end: 20171222
  9. DILANTIN [Concomitant]
     Active Substance: PHENYTOIN
     Route: 065
  10. UBIQUINOL [Concomitant]
     Active Substance: UBIQUINOL
  11. VITAMIN D3 [Concomitant]
     Active Substance: CHOLECALCIFEROL
  12. METOPROLOL. [Concomitant]
     Active Substance: METOPROLOL
  13. ASPIRIN. [Concomitant]
     Active Substance: ASPIRIN
     Route: 065
  14. VITAMIN C [Concomitant]
     Active Substance: ASCORBIC ACID
     Route: 065

REACTIONS (3)
  - White blood cell count decreased [Recovering/Resolving]
  - Alopecia [Recovering/Resolving]
  - Muscular weakness [Not Recovered/Not Resolved]

NARRATIVE: CASE EVENT DATE: 20180118
